FAERS Safety Report 6165318-3 (Version None)
Quarter: 2009Q2

REPORT INFORMATION
  Report Type: 
  Country: None (occurrence: None)
  Receive Date: 20090423
  Receipt Date: 20090415
  Transmission Date: 20091009
  Serious: Yes (Hospitalization)
  Sender: FDA-Public Use
  Company Number: US-GILEAD-2009-0021490

PATIENT
  Sex: Female
  Weight: 113.5 kg

DRUGS (12)
  1. LETAIRIS [Suspect]
     Indication: PULMONARY ARTERIAL HYPERTENSION
     Route: 048
     Dates: start: 20090320, end: 20090407
  2. PROCARDIA [Concomitant]
  3. LIPITOR [Concomitant]
  4. AVAPRO [Concomitant]
  5. LASIX [Concomitant]
  6. ASPIRIN [Concomitant]
  7. FERGON [Concomitant]
  8. AMBIEN [Concomitant]
  9. AMARYL [Concomitant]
  10. ZOLOFT [Concomitant]
  11. LANTUS [Concomitant]
  12. VITAMIN D [Concomitant]

REACTIONS (4)
  - CONSTIPATION [None]
  - OEDEMA PERIPHERAL [None]
  - PALPITATIONS [None]
  - SYNCOPE [None]
